FAERS Safety Report 9549040 (Version 2)
Quarter: 2013Q4

REPORT INFORMATION
  Report Type: Report from Study
  Country: CA (occurrence: CA)
  Receive Date: 20130924
  Receipt Date: 20131128
  Transmission Date: 20140711
  Serious: Yes (Other)
  Sender: FDA-Public Use
  Company Number: CA-ROCHE-1279888

PATIENT
  Sex: Male
  Weight: 73.5 kg

DRUGS (14)
  1. RITUXAN [Suspect]
     Indication: SJOGREN^S SYNDROME
     Dosage: DAY 1 AND DAY 15
     Route: 042
     Dates: start: 20130430
  2. DIPHENHYDRAMINE HCL [Concomitant]
     Indication: PREMEDICATION
     Route: 048
     Dates: start: 20130430
  3. ACETAMINOPHEN [Concomitant]
     Indication: PREMEDICATION
     Route: 048
     Dates: start: 20130430
  4. METHYLPREDNISOLONE [Concomitant]
     Indication: PREMEDICATION
     Route: 042
     Dates: start: 20130430
  5. PLAQUENIL [Concomitant]
  6. PREDNISONE [Concomitant]
     Dosage: ALTERNATING DAYS
     Route: 065
  7. NORVASC [Concomitant]
  8. ZESTRIL [Concomitant]
  9. ACTONEL [Concomitant]
     Route: 065
  10. MINOCYCLINE [Concomitant]
  11. ASA (ACETYLSALICYLIC ACID) [Concomitant]
     Dosage: ALTERNATING DAYS
     Route: 065
  12. VITAMIN C [Concomitant]
  13. GLUTEN DIET [Concomitant]
  14. GINKOBA [Concomitant]

REACTIONS (1)
  - Glucose tolerance impaired [Unknown]
